FAERS Safety Report 20182530 (Version 3)
Quarter: 2022Q2

REPORT INFORMATION
  Report Type: Report from Study
  Country: US (occurrence: US)
  Receive Date: 20211214
  Receipt Date: 20220504
  Transmission Date: 20220720
  Serious: Yes (Hospitalization, Other)
  Sender: FDA-Public Use
  Company Number: US-BRISTOL-MYERS SQUIBB COMPANY-BMS-2021-132599

PATIENT
  Age: 76 Year
  Sex: Female
  Weight: 58.3 kg

DRUGS (1)
  1. NIVOLUMAB [Suspect]
     Active Substance: NIVOLUMAB
     Indication: Renal cell carcinoma
     Dosage: 480 MILLIGRAM
     Route: 065
     Dates: start: 20210809, end: 20211102

REACTIONS (9)
  - Vomiting [Recovered/Resolved]
  - Blood bicarbonate decreased [Recovering/Resolving]
  - Nausea [Recovered/Resolved]
  - Dehydration [Recovered/Resolved]
  - Muscular weakness [Recovering/Resolving]
  - Acute kidney injury [Recovering/Resolving]
  - Pneumonia [Recovering/Resolving]
  - Decreased appetite [Recovered/Resolved]
  - Hypokalaemia [Recovering/Resolving]

NARRATIVE: CASE EVENT DATE: 20211116
